FAERS Safety Report 4936091-9 (Version None)
Quarter: 2006Q1

REPORT INFORMATION
  Report Type: 
  Country: None (occurrence: None)
  Receive Date: 20060307
  Receipt Date: 20051011
  Transmission Date: 20060701
  Serious: No
  Sender: FDA-Public Use
  Company Number: US-GLAXOSMITHKLINE-A0577821A

PATIENT
  Age: 66 Year
  Sex: Male

DRUGS (13)
  1. REQUIP [Suspect]
     Dosage: 1.5MG PER DAY
     Route: 048
     Dates: start: 20050917
  2. GABITRIL [Concomitant]
  3. PLAVIX [Concomitant]
  4. LOPID [Concomitant]
  5. ATENOLOL [Concomitant]
  6. CENTRUM VITAMIN [Concomitant]
  7. VITAMIN B-12 [Concomitant]
  8. FLEXERIL [Concomitant]
  9. ENTERIC ASPIRIN [Concomitant]
  10. TYLENOL (CAPLET) [Concomitant]
  11. MIDRIN [Concomitant]
  12. PHENERGAN [Concomitant]
  13. MUCINEX [Concomitant]

REACTIONS (3)
  - COUGH [None]
  - DRY MOUTH [None]
  - FATIGUE [None]
